FAERS Safety Report 4307589-1 (Version None)
Quarter: 2004Q1

REPORT INFORMATION
  Report Type: 
  Country: None (occurrence: None)
  Receive Date: 20040226
  Receipt Date: 20040213
  Transmission Date: 20041129
  Serious: Yes (Life-Threatening, Hospitalization)
  Sender: FDA-Public Use
  Company Number: 2004-DE-00735GD

PATIENT
  Age: 48 Year
  Sex: Female

DRUGS (3)
  1. CYCLOPHOSPHAMIDE [Suspect]
     Indication: LUPUS NEPHRITIS
     Dosage: 12.5 MG/KG (NR, ONCE), IV
     Route: 042
  2. AZATHIOPRINE [Suspect]
     Indication: LUPUS NEPHRITIS
     Dosage: 3 MG/KG (NR), PO
     Route: 048
  3. PREDNISOLONE [Suspect]
     Indication: LUPUS NEPHRITIS
     Dosage: 1 MG/KG(NR), PO
     Route: 048

REACTIONS (9)
  - BLOOD OSMOLARITY DECREASED [None]
  - BLOOD SODIUM DECREASED [None]
  - CONFUSIONAL STATE [None]
  - DISORIENTATION [None]
  - DRUG EFFECT DECREASED [None]
  - GRAND MAL CONVULSION [None]
  - INCOHERENT [None]
  - URINE OSMOLARITY DECREASED [None]
  - WATER INTOXICATION [None]
